FAERS Safety Report 6025010-2 (Version None)
Quarter: 2008Q4

REPORT INFORMATION
  Report Type: 
  Country: None (occurrence: None)
  Receive Date: 20081231
  Receipt Date: 20081226
  Transmission Date: 20090506
  Serious: Yes (Hospitalization)
  Sender: FDA-Public Use
  Company Number: JP-ASTRAZENECA-2008AP09793

PATIENT
  Age: 64 Year
  Sex: Female
  Weight: 46 kg

DRUGS (6)
  1. AZD4877 [Suspect]
     Indication: METASTATIC NEOPLASM
     Dosage: 25 MG/BODY NUMBER OF SEPARATE DOSAGES UNKNOWN
     Route: 041
     Dates: start: 20081105, end: 20081126
  2. MS CONTIN [Concomitant]
     Indication: CANCER PAIN
     Dosage: NUMBER OF SEPARATE DOSAGES UNKNOWN
     Route: 048
     Dates: start: 20081121, end: 20081212
  3. MS CONTIN [Concomitant]
     Dosage: NUMBER OF SEPARATE DOSAGES UNKNOWN
     Route: 048
     Dates: start: 20081213
  4. GASTER D [Concomitant]
     Indication: PROPHYLAXIS AGAINST GASTROINTESTINAL ULCER
     Dosage: NUMBER OF SEPARATE DOSAGES UNKNOWN
     Route: 048
  5. LOXONIN [Concomitant]
     Indication: CANCER PAIN
     Dosage: NUMBER OF SEPARATE DOSAGES UNKNOWN
     Route: 048
  6. MAGNESIUM OXIDE [Concomitant]
     Indication: CONSTIPATION
     Dosage: AS REQUIRED
     Route: 048

REACTIONS (3)
  - CONSTIPATION [None]
  - MALAISE [None]
  - URINARY TRACT INFECTION [None]
